FAERS Safety Report 10634167 (Version 3)
Quarter: 2015Q2

REPORT INFORMATION
  Report Type: Spontaneous
  Country: US (occurrence: None)
  Receive Date: 20141203
  Receipt Date: 20150506
  Transmission Date: 20150821
  Serious: Yes (Hospitalization, Other)
  Sender: FDA-Public Use
  Company Number: ADR-2010-8906

PATIENT
  Sex: Male

DRUGS (1)
  1. LIORESAL [Suspect]
     Active Substance: BACLOFEN

REACTIONS (9)
  - Implant site extravasation [None]
  - No therapeutic response [None]
  - Headache [None]
  - Meningitis [None]
  - Cerebrospinal fluid leakage [None]
  - Cerebral hygroma [None]
  - Pain [None]
  - Catheter site extravasation [None]
  - Seroma [None]
